FAERS Safety Report 6223109-9 (Version None)
Quarter: 2009Q2

REPORT INFORMATION
  Report Type: 
  Country: None (occurrence: None)
  Receive Date: 20090611
  Receipt Date: 20090114
  Transmission Date: 20091009
  Serious: No
  Sender: FDA-Public Use
  Company Number: US-BAYER-200841732NA

PATIENT
  Age: 64 Year
  Sex: Male

DRUGS (2)
  1. ULTRAVIST 300 [Suspect]
     Indication: PROSTATE CANCER
     Dosage: TOTAL DAILY DOSE: 100 ML  UNIT DOSE: 100 ML
     Route: 042
     Dates: start: 20081226, end: 20081226
  2. GASTROGRAFIN [Concomitant]
     Indication: COMPUTERISED TOMOGRAM ABDOMEN
     Dosage: GIVEN BEFORE ULTRAVIST
     Route: 048
     Dates: start: 20081226, end: 20081226

REACTIONS (2)
  - PRURITUS [None]
  - RASH ERYTHEMATOUS [None]
